FAERS Safety Report 6060486-6 (Version None)
Quarter: 2009Q1

REPORT INFORMATION
  Report Type: 
  Country: None (occurrence: None)
  Receive Date: 20090201
  Receipt Date: 20090126
  Transmission Date: 20090719
  Serious: Yes (Other)
  Sender: FDA-Public Use
  Company Number: BR-ASTRAZENECA-2009UW02379

PATIENT
  Age: 79 Year
  Sex: Female
  Weight: 88 kg

DRUGS (7)
  1. ATACAND HCT [Suspect]
     Indication: HYPERTENSION
     Dosage: 16/12.5 MG
     Route: 048
     Dates: start: 20080801
  2. SELOZOK [Suspect]
     Indication: ARRHYTHMIA
     Route: 048
  3. SELOZOK [Suspect]
     Indication: CARDIAC FIBRILLATION
     Route: 048
  4. SPLENDIL [Suspect]
     Indication: HYPERTENSION
     Route: 048
     Dates: start: 20081101, end: 20090110
  5. COUMADIN [Concomitant]
     Indication: ANTICOAGULANT THERAPY
     Route: 048
     Dates: start: 20050101
  6. SIMVASTATIN [Concomitant]
     Indication: HYPERCHOLESTEROLAEMIA
     Route: 048
     Dates: end: 20081109
  7. LIPITOR [Concomitant]
     Indication: HYPERCHOLESTEROLAEMIA
     Route: 048
     Dates: start: 20081110, end: 20081226

REACTIONS (7)
  - BLOOD CHOLESTEROL INCREASED [None]
  - FIBROMYALGIA [None]
  - GAIT DISTURBANCE [None]
  - INFLAMMATION [None]
  - LIMB DISCOMFORT [None]
  - WEIGHT DECREASED [None]
  - WEIGHT INCREASED [None]
